FAERS Safety Report 5109883-3 (Version None)
Quarter: 2006Q3

REPORT INFORMATION
  Report Type: 
  Country: None (occurrence: None)
  Receive Date: 20060919
  Receipt Date: 20060919
  Transmission Date: 20061208
  Serious: Yes (Hospitalization)
  Sender: FDA-Public Use
  Company Number: None

PATIENT
  Age: 84 Year
  Sex: Female
  Weight: 71.8 kg

DRUGS (11)
  1. HYZAAR [Suspect]
     Indication: HYPERTENSION
     Dosage: 12.5 MG X 2 DAILY PO    RECENT DOSE INCREASED
     Route: 048
  2. TOPROL-XL [Concomitant]
  3. MONOPRIL [Concomitant]
  4. AMIODARONE HCL [Concomitant]
  5. LIPITOR [Concomitant]
  6. NORVASC [Concomitant]
  7. LASIX [Concomitant]
  8. HYZAAR [Concomitant]
  9. CLARITIN [Concomitant]
  10. AMARYL [Concomitant]
  11. ASPIRIN [Concomitant]

REACTIONS (3)
  - BLOOD SODIUM DECREASED [None]
  - FATIGUE [None]
  - MALAISE [None]
